FAERS Safety Report 6907523-1 (Version None)
Quarter: 2010Q3

REPORT INFORMATION
  Report Type: 
  Country: None (occurrence: None)
  Receive Date: 20100805
  Receipt Date: 20100726
  Transmission Date: 20110219
  Serious: No
  Sender: FDA-Public Use
  Company Number: US-BIOGENIDEC-2010BI025971

PATIENT
  Sex: Female
  Weight: 79 kg

DRUGS (4)
  1. TYSABRI [Suspect]
     Indication: MULTIPLE SCLEROSIS
     Route: 042
     Dates: start: 20080609, end: 20090707
  2. TYSABRI [Suspect]
     Route: 042
     Dates: start: 20090108
  3. COPAXONE [Concomitant]
     Indication: MULTIPLE SCLEROSIS
  4. BACLOFEN [Concomitant]
     Dates: start: 20090624

REACTIONS (1)
  - KNEE OPERATION [None]
